FAERS Safety Report 6913557-3 (Version None)
Quarter: 2010Q3

REPORT INFORMATION
  Report Type: 
  Country: None (occurrence: None)
  Receive Date: 20100803
  Receipt Date: 20100720
  Transmission Date: 20110219
  Serious: Yes (Hospitalization, Other)
  Sender: FDA-Public Use
  Company Number: ENTC2010-0241

PATIENT
  Age: 76 Year
  Sex: Male

DRUGS (1)
  1. STALEVO 100 [Suspect]
     Indication: PARKINSON'S DISEASE
     Dosage: 200 MG (3 PILLS PER DAY)
     Dates: start: 20090101, end: 20100411

REACTIONS (2)
  - ABSCESS [None]
  - HERNIA [None]
